FAERS Safety Report 9813432 (Version 2)
Quarter: 2014Q1

REPORT INFORMATION
  Report Type: Spontaneous
  Country: US (occurrence: US)
  Receive Date: 20140113
  Receipt Date: 20140131
  Transmission Date: 20141002
  Serious: Yes (Other)
  Sender: FDA-Public Use
  Company Number: US-GILEAD-2014-0091843

PATIENT
  Age: 92 Year
  Sex: Female

DRUGS (1)
  1. LETAIRIS [Suspect]
     Indication: PRODUCT USED FOR UNKNOWN INDICATION
     Dosage: 5 MG, QD
     Route: 065
     Dates: start: 20090903, end: 201312

REACTIONS (5)
  - Fall [Unknown]
  - Blindness [Unknown]
  - Deafness [Unknown]
  - Dementia Alzheimer^s type [Unknown]
  - Cardiac assistance device user [Unknown]
